FAERS Safety Report 6718204-1 (Version None)
Quarter: 2010Q2

REPORT INFORMATION
  Report Type: 
  Country: None (occurrence: None)
  Receive Date: 20100510
  Receipt Date: 20100428
  Transmission Date: 20101027
  Serious: Yes (Hospitalization)
  Sender: FDA-Public Use
  Company Number: AU-PFIZER INC-2010029869

PATIENT
  Age: 75 Year
  Sex: Male

DRUGS (2)
  1. SUNITINIB MALATE [Suspect]
     Indication: METASTATIC RENAL CELL CARCINOMA
     Dosage: 50 MG, UNK
     Route: 048
     Dates: start: 20090901
  2. TORISEL [Suspect]
     Indication: RENAL CELL CARCINOMA
     Dosage: 25 MG, WEEKLY
     Dates: start: 20100101

REACTIONS (15)
  - ASTHENIA [None]
  - BLOOD GLUCOSE INCREASED [None]
  - CONJUNCTIVITIS [None]
  - DECREASED APPETITE [None]
  - DIABETES MELLITUS [None]
  - DISEASE PROGRESSION [None]
  - EPISTAXIS [None]
  - FATIGUE [None]
  - GASTROOESOPHAGEAL REFLUX DISEASE [None]
  - NASAL DISCOMFORT [None]
  - NAUSEA [None]
  - RENAL CELL CARCINOMA [None]
  - SOMNOLENCE [None]
  - SYNCOPE [None]
  - THROMBOCYTOPENIA [None]
